FAERS Safety Report 5859778-2 (Version None)
Quarter: 2008Q3

REPORT INFORMATION
  Report Type: 
  Country: None (occurrence: None)
  Receive Date: 20080827
  Receipt Date: 20080815
  Transmission Date: 20090109
  Serious: Yes (Hospitalization)
  Sender: FDA-Public Use
  Company Number: NL-ROCHE-578660

PATIENT
  Age: 75 Year
  Sex: Male

DRUGS (12)
  1. MIRCERA [Suspect]
     Route: 042
     Dates: start: 20080721
  2. UNSPECIFIED MEDICATION [Concomitant]
     Dosage: COMEDICATION NOS.
  3. ETALPHA [Concomitant]
  4. CLEMASTINE FUMARATE [Concomitant]
  5. INHIBIN [Concomitant]
  6. LIPITOR [Concomitant]
  7. VENOFER [Concomitant]
  8. MICARDIS [Concomitant]
  9. CALCICHEW [Concomitant]
  10. ASCAL [Concomitant]
  11. OMEPRAZOLE [Concomitant]
  12. SELOKEN [Concomitant]
     Dosage: DRUG: SELOKENE.

REACTIONS (2)
  - ANAPHYLACTIC SHOCK [None]
  - SHUNT OCCLUSION [None]
